FAERS Safety Report 9656144 (Version 1)
Quarter: 2013Q4

REPORT INFORMATION
  Report Type: Report from Study
  Country: NL (occurrence: NL)
  Receive Date: 20131030
  Receipt Date: 20131030
  Transmission Date: 20140711
  Serious: Yes (Hospitalization)
  Sender: FDA-Public Use
  Company Number: PHHY2013NL122240

PATIENT
  Age: 50 Year
  Sex: Female

DRUGS (2)
  1. ZOMETA [Suspect]
     Indication: BREAST CANCER
     Dosage: 4 MG/100 ML (ONCE EVERY 6 MONTHS)
     Route: 042
  2. ZOMETA [Suspect]
     Dosage: 4 MG/100 ML (ONCE EVERY 6 MONTHS)
     Route: 042
     Dates: start: 20130610

REACTIONS (2)
  - Limb discomfort [Recovered/Resolved with Sequelae]
  - Rash [Unknown]
